FAERS Safety Report 6054210-0 (Version None)
Quarter: 2009Q1

REPORT INFORMATION
  Report Type: 
  Country: None (occurrence: None)
  Receive Date: 20090127
  Receipt Date: 20090120
  Transmission Date: 20090719
  Serious: Yes (Hospitalization, Other)
  Sender: FDA-Public Use
  Company Number: US-ELI_LILLY_AND_COMPANY-US200812002415

PATIENT
  Sex: Male
  Weight: 108.84 kg

DRUGS (14)
  1. BYETTA [Suspect]
     Dosage: 5 UG, 2/D
     Route: 065
     Dates: start: 20080501, end: 20080801
  2. CEFDINIR [Concomitant]
     Dosage: 300 MG, UNK
  3. AZITHROMYCIN [Concomitant]
     Dosage: 500 MG, UNK
  4. HYDROCORTISONE-NEOMYCIN-POLYMYXIN B [Concomitant]
     Route: 047
  5. OMEPRAZOLE [Concomitant]
     Dosage: 40 MG, UNK
  6. CEPHALEXIN [Concomitant]
     Dosage: 500 MG, UNK
  7. FERROUS SULFATE TAB [Concomitant]
     Dosage: 325 MG, UNK
  8. NSAID'S [Concomitant]
     Indication: ARTHRITIS
     Dosage: UNK, DAILY (1/D)
  9. NORTRIPTYLINE HCL [Concomitant]
     Dosage: 10 MG, EACH EVENING
  10. GABAPENTIN [Concomitant]
     Dosage: 100 MG, DAILY (1/D)
  11. PRAVACHOL [Concomitant]
     Dosage: 80 MG, EACH EVENING
  12. PIROXICAM [Concomitant]
     Dosage: 20 MG, DAILY (1/D)
  13. LISINOPRIL [Concomitant]
     Dosage: 40 MG, DAILY (1/D)
  14. INSULATARD NPH HUMAN [Concomitant]
     Dosage: 40 U, 2/D

REACTIONS (3)
  - GASTROINTESTINAL HAEMORRHAGE [None]
  - OESOPHAGITIS [None]
  - PANCREATITIS [None]
